FAERS Safety Report 19516201 (Version 1)
Quarter: 2021Q3

REPORT INFORMATION
  Report Type: Spontaneous
  Country: US (occurrence: US)
  Receive Date: 20210709
  Receipt Date: 20210709
  Transmission Date: 20211014
  Serious: No
  Sender: FDA-Public Use
  Company Number: US-ASTELLAS-2021US002422

PATIENT
  Age: 82 Year
  Sex: Female

DRUGS (1)
  1. MYRBETRIQ [Suspect]
     Active Substance: MIRABEGRON
     Indication: URINARY TRACT INFECTION
     Route: 065
     Dates: end: 202101

REACTIONS (7)
  - Urinary tract infection [Unknown]
  - Abdominal pain lower [Unknown]
  - Rash pruritic [Unknown]
  - Product use in unapproved indication [Unknown]
  - Product storage error [Unknown]
  - Pelvic pain [Unknown]
  - Condition aggravated [Unknown]
